FAERS Safety Report 8235601-6 (Version None)
Quarter: 2012Q1

REPORT INFORMATION
  Report Type: 
  Country: None (occurrence: None)
  Receive Date: 20120326
  Receipt Date: 20120316
  Transmission Date: 20120608
  Serious: Yes (Death, Life-Threatening, Hospitalization, Other)
  Sender: FDA-Public Use
  Company Number: US-ELI_LILLY_AND_COMPANY-US201007005370

PATIENT
  Sex: Female

DRUGS (20)
  1. LORAZEPAM [Concomitant]
     Dosage: 1 MG, DAILY (1/D)
     Route: 065
  2. NORVASC [Concomitant]
     Dosage: 10 MG, DAILY (1/D)
     Route: 065
  3. FORTEO [Suspect]
     Dosage: 20 UG, DAILY (1/D)
  4. LEXAPRO [Concomitant]
     Dosage: 20 MG, DAILY (1/D)
     Route: 065
  5. ACYCLOVIR [Concomitant]
     Dosage: 400 MG, 5 TIMES A DAY FOR HER LEDT EYE
     Route: 065
  6. MESALAMINE [Concomitant]
  7. TRAZODONE HCL [Concomitant]
     Dosage: 150 MG, AT NIGHT
     Route: 065
  8. VIROPTIC [Concomitant]
     Dosage: UNK, 5 TIMES A DAY TO THE LEFT EYE
     Route: 065
  9. FORTEO [Suspect]
     Dosage: 20 UG, DAILY (1/D)
  10. FORTEO [Suspect]
     Dosage: 20 UG, QD
  11. LYRICA [Concomitant]
     Dosage: 150 MG, 2/D
     Route: 065
  12. METHADONE HCL [Concomitant]
     Dosage: 10 MG, 3/D
     Route: 065
  13. ZOFRAN [Concomitant]
     Dosage: 4 MG, EVERY 6 HRS
     Route: 048
  14. FORTEO [Suspect]
     Indication: OSTEOPOROSIS
     Dosage: 20 UG, DAILY (1/D)
     Dates: start: 20100714
  15. VITAMIN D [Concomitant]
     Dosage: 50000 U, 3/W ON MONDAY, WEDNESDAY AND FRIDAY
     Route: 065
  16. PROTONIX [Concomitant]
     Dosage: 40 MG, QD
     Route: 048
  17. AMBIEN [Concomitant]
     Dosage: 12.5 MG, AT NIGHT
     Route: 065
  18. LISINOPRIL [Concomitant]
     Dosage: 20 MG, DAILY (1/D)
     Route: 065
  19. SIMVASTATIN [Concomitant]
     Dosage: 40 MG, AT NIGHT
     Route: 065
  20. TRIAMTERENE AND HYDROCHLOROTHIAZIDE [Concomitant]

REACTIONS (24)
  - DISORIENTATION [None]
  - VISUAL ACUITY REDUCED [None]
  - FATIGUE [None]
  - ACUTE RESPIRATORY FAILURE [None]
  - KERATITIS HERPETIC [None]
  - STRESS [None]
  - DIZZINESS [None]
  - SEPTIC SHOCK [None]
  - RENAL FAILURE ACUTE [None]
  - URINARY TRACT INFECTION [None]
  - ARTHRALGIA [None]
  - ASTHENIA [None]
  - PNEUMONIA ASPIRATION [None]
  - GAIT DISTURBANCE [None]
  - STAPHYLOCOCCUS TEST POSITIVE [None]
  - HEADACHE [None]
  - CONSTIPATION [None]
  - HYPOVITAMINOSIS [None]
  - DEATH [None]
  - PYREXIA [None]
  - FALL [None]
  - MEMORY IMPAIRMENT [None]
  - SENSORY DISTURBANCE [None]
  - NAUSEA [None]
